FAERS Safety Report 10040733 (Version 1)
Quarter: 2014Q1

REPORT INFORMATION
  Report Type: Spontaneous
  Country: US (occurrence: None)
  Receive Date: 20140326
  Receipt Date: 20140326
  Transmission Date: 20141002
  Serious: Yes (Hospitalization)
  Sender: FDA-Public Use
  Company Number: None

PATIENT
  Age: 58 Year
  Sex: Female
  Weight: 68.04 kg

DRUGS (1)
  1. HUMIRA 40 MG/0.8 ML PEN [Suspect]
     Indication: PSORIASIS
     Dosage: 40 MG/ 1 PEN 1 EVERY OTHER WEEK, GIVEN INTO/UNDER THE SKIN
     Dates: start: 20140202, end: 20140309

REACTIONS (5)
  - Rash erythematous [None]
  - Rash [None]
  - Swelling face [None]
  - Pain of skin [None]
  - Butterfly rash [None]
